FAERS Safety Report 15285186 (Version 1)
Quarter: 2018Q3

REPORT INFORMATION
  Report Type: Spontaneous
  Country: US (occurrence: US)
  Receive Date: 20180816
  Receipt Date: 20180816
  Transmission Date: 20181010
  Serious: Yes (Hospitalization, Other)
  Sender: FDA-Public Use
  Company Number: US-QILU PHARMACEUTICAL CO.LTD.-QLU-000576-2018

PATIENT
  Age: 61 Year
  Sex: Female

DRUGS (2)
  1. CEFEPIME HYDROCHLORIDE. [Suspect]
     Active Substance: CEFEPIME HYDROCHLORIDE
     Indication: ARTHRITIS INFECTIVE
     Dosage: UNK (CONTINOUS FOR 6 WEEKS)
     Route: 065
  2. CEFEPIME HYDROCHLORIDE. [Suspect]
     Active Substance: CEFEPIME HYDROCHLORIDE
     Indication: PSEUDOMONAS INFECTION

REACTIONS (8)
  - Aphasia [Unknown]
  - Vomiting [Unknown]
  - Acute kidney injury [Unknown]
  - Status epilepticus [Recovered/Resolved]
  - Unresponsive to stimuli [Unknown]
  - Nausea [Unknown]
  - Mental status changes [Recovered/Resolved]
  - Confusional state [Unknown]
